FAERS Safety Report 16543625 (Version 17)
Quarter: 2022Q2

REPORT INFORMATION
  Report Type: Report from Study
  Country: CN (occurrence: None)
  Receive Date: 20190709
  Receipt Date: 20220404
  Transmission Date: 20220720
  Serious: Yes (Hospitalization)
  Sender: FDA-Public Use
  Company Number: CN-ROCHE-2348664

PATIENT
  Age: 75 Year
  Sex: Male
  Weight: 59 kg

DRUGS (21)
  1. ATEZOLIZUMAB [Suspect]
     Active Substance: ATEZOLIZUMAB
     Indication: Hepatocellular carcinoma
     Dosage: ON 05/JUN/2019, HE RECEIVED MOST RECENT DOSE OF INTRAVENOUS ATEZOLIZUMAB PRIOR TO SERIOUS ADVERESE E
     Route: 041
     Dates: start: 20181109
  2. BEVACIZUMAB [Suspect]
     Active Substance: BEVACIZUMAB
     Indication: Hepatocellular carcinoma
     Dosage: ON 05/JUN/2019, HE RECEIVED MOST RECENT DOSE OF INTRAVENOUS BEVACIZUMAB: 960 MG PRIOR TO SERIOUS ADV
     Route: 042
     Dates: start: 20181109
  3. DOMPERIDONE [Concomitant]
     Active Substance: DOMPERIDONE
     Dates: start: 20190626, end: 20190702
  4. NIFEDIPINE [Concomitant]
     Active Substance: NIFEDIPINE
     Indication: Hypertension
     Dosage: CONTROLLED-RELEASE TABLETS
     Dates: start: 20181018
  5. PERINDOPRIL [Concomitant]
     Active Substance: PERINDOPRIL
     Indication: Hypertension
     Dates: start: 20181024
  6. INDAPAMIDE [Concomitant]
     Active Substance: INDAPAMIDE
     Indication: Hypertension
     Dates: start: 20181024
  7. LIPITOR [Concomitant]
     Active Substance: ATORVASTATIN CALCIUM
     Indication: Hypertension
     Dosage: AUXILIARY TREATMENT
     Dates: start: 20181020
  8. GLUCOPHAGE [Concomitant]
     Active Substance: METFORMIN HYDROCHLORIDE
     Indication: Diabetes mellitus
     Dates: start: 20181224
  9. CHARCOAL [Concomitant]
     Active Substance: ACTIVATED CHARCOAL
     Indication: Chronic kidney disease
     Dosage: MEDICINAL CHARCOAL TABLETS
     Dates: start: 20190221, end: 20191003
  10. VOGLIBOSE [Concomitant]
     Active Substance: VOGLIBOSE
     Indication: Hypoglycaemia
     Dosage: DISPERSIBLE TABLETS
     Dates: start: 20190320
  11. ERYTHROPOIETIN [Concomitant]
     Active Substance: ERYTHROPOIETIN
     Indication: Anaemia
     Dates: start: 20190626, end: 20190702
  12. ERYTHROPOIETIN [Concomitant]
     Active Substance: ERYTHROPOIETIN
     Dates: start: 20190712, end: 20190712
  13. DOMPERIDONE [Concomitant]
     Active Substance: DOMPERIDONE
     Dates: start: 20190626, end: 20190702
  14. BERBERINE [Concomitant]
     Active Substance: BERBERINE
     Indication: Infection prophylaxis
     Dates: start: 20190614, end: 20190702
  15. PHLOROGLUCINOL [Concomitant]
     Active Substance: PHLOROGLUCINOL
     Indication: Abdominal pain upper
     Dates: start: 20190614, end: 20190614
  16. PHLOROGLUCINOL [Concomitant]
     Active Substance: PHLOROGLUCINOL
     Dates: start: 20190618, end: 20190618
  17. SODIUM PHOSPHATE [Concomitant]
     Active Substance: SODIUM PHOSPHATE
     Dates: start: 20190614, end: 20190614
  18. PANTOPRAZOLE SODIUM [Concomitant]
     Active Substance: PANTOPRAZOLE SODIUM
     Dates: start: 20190614, end: 20190615
  19. PANTOPRAZOLE SODIUM [Concomitant]
     Active Substance: PANTOPRAZOLE SODIUM
     Dates: start: 20190618, end: 20190618
  20. METOCLOPRAMIDE DIHYDROCHLORIDE [Concomitant]
     Dates: start: 20190626, end: 20190626
  21. CEFOPERAZONE\TAZOBACTAM SODIUM [Concomitant]
     Active Substance: CEFOPERAZONE\TAZOBACTAM SODIUM
     Dates: start: 20190614, end: 20190615

REACTIONS (1)
  - Duodenal ulcer [Recovered/Resolved]

NARRATIVE: CASE EVENT DATE: 20190702
